FAERS Safety Report 8510321-9 (Version None)
Quarter: 2012Q3

REPORT INFORMATION
  Report Type: 
  Country: None (occurrence: None)
  Receive Date: 20120713
  Receipt Date: 20120626
  Transmission Date: 20120928
  Serious: No
  Sender: FDA-Public Use
  Company Number: US-ASTRAZENECA-2012SE43322

PATIENT
  Sex: Female

DRUGS (2)
  1. ZOMIG [Suspect]
     Dosage: QUARTER OF 5MG
     Route: 048
  2. ZOMIG [Suspect]
     Route: 048

REACTIONS (2)
  - OFF LABEL USE [None]
  - THERAPEUTIC RESPONSE INCREASED [None]
